FAERS Safety Report 9028363 (Version 4)
Quarter: 2014Q1

REPORT INFORMATION
  Report Type: Spontaneous
  Country: US (occurrence: US)
  Receive Date: 20130124
  Receipt Date: 20140307
  Transmission Date: 20141002
  Serious: Yes (Hospitalization, Other)
  Sender: FDA-Public Use
  Company Number: US-009507513-1301USA010639

PATIENT
  Sex: Female
  Weight: 77.98 kg

DRUGS (6)
  1. FOSAMAX [Suspect]
     Indication: OSTEOPOROSIS
     Dosage: 70 MG, QW
     Route: 048
     Dates: start: 2001, end: 2008
  2. FOSAMAX [Suspect]
     Dosage: UNK
     Route: 048
     Dates: start: 200705, end: 201202
  3. ALENDRONATE SODIUM [Suspect]
     Indication: OSTEOPOROSIS
     Dosage: 70 MG, QW
     Route: 048
     Dates: start: 2008, end: 201202
  4. BONIVA [Suspect]
     Indication: OSTEOPOROSIS
     Dosage: 150 MG, UNK
     Route: 048
     Dates: start: 2005, end: 2006
  5. ACTONEL [Suspect]
     Indication: OSTEOPOROSIS
     Dosage: 35 MG, UNK
     Route: 048
     Dates: start: 20060821, end: 20081012
  6. CALCIUM (UNSPECIFIED) [Concomitant]
     Dosage: UNK
     Dates: start: 2001

REACTIONS (22)
  - Femur fracture [Unknown]
  - Intramedullary rod insertion [Unknown]
  - Knee arthroplasty [Unknown]
  - Hip arthroplasty [Unknown]
  - Renal failure [Unknown]
  - Nephrectomy [Unknown]
  - Adverse event [Unknown]
  - Low turnover osteopathy [Unknown]
  - Hypertension [Unknown]
  - Arthritis [Unknown]
  - Fall [Unknown]
  - Osteopenia [Unknown]
  - Osteoarthritis [Unknown]
  - Spinal osteoarthritis [Unknown]
  - Calcinosis [Unknown]
  - Loose body in joint [Unknown]
  - Blood glucose abnormal [Unknown]
  - Hypothyroidism [Unknown]
  - Hysterectomy [Unknown]
  - Appendicectomy [Unknown]
  - Pain in extremity [Unknown]
  - Back pain [Unknown]
